FAERS Safety Report 14593043 (Version 1)
Quarter: 2018Q1

REPORT INFORMATION
  Report Type: Spontaneous
  Country: US (occurrence: US)
  Receive Date: 20180302
  Receipt Date: 20180302
  Transmission Date: 20180509
  Serious: No
  Sender: FDA-Public Use
  Company Number: US-ENDO PHARMACEUTICALS INC-2017-008676

PATIENT
  Age: 51 Year
  Sex: Male
  Weight: 113.38 kg

DRUGS (7)
  1. TRULICITY [Concomitant]
     Active Substance: DULAGLUTIDE
     Indication: DIABETES MELLITUS
  2. LISINOPRIL. [Concomitant]
     Active Substance: LISINOPRIL
     Indication: PRODUCT USED FOR UNKNOWN INDICATION
  3. GLIPIZIDE. [Concomitant]
     Active Substance: GLIPIZIDE
     Indication: DIABETES MELLITUS
  4. XIAFLEX [Suspect]
     Active Substance: COLLAGENASE CLOSTRIDIUM HISTOLYTICUM
     Indication: DUPUYTREN^S CONTRACTURE
     Dosage: UNK, SINGLE, ONE INJECTION IN CORD OF MIDDLE FINGER,ONE INJECTION IN CORD OF LITTLE FINGER L HAND
     Route: 026
     Dates: start: 20171205
  5. PIOGLITAZONE AND METFORMIN [Concomitant]
     Active Substance: METFORMIN HYDROCHLORIDE\PIOGLITAZONE HYDROCHLORIDE
     Indication: DIABETES MELLITUS
  6. INVOKANA [Concomitant]
     Active Substance: CANAGLIFLOZIN
     Indication: PRODUCT USED FOR UNKNOWN INDICATION
  7. VYTORIN [Concomitant]
     Active Substance: EZETIMIBE\SIMVASTATIN
     Indication: BLOOD CHOLESTEROL INCREASED

REACTIONS (6)
  - Peripheral swelling [Recovered/Resolved]
  - Axillary pain [Recovered/Resolved]
  - Axillary mass [Recovered/Resolved]
  - Drug ineffective [Unknown]
  - Contusion [Recovering/Resolving]
  - Laceration [Unknown]

NARRATIVE: CASE EVENT DATE: 20171205
